FAERS Safety Report 9748828 (Version 2)
Quarter: 2013Q4

REPORT INFORMATION
  Report Type: Spontaneous
  Country: US (occurrence: US)
  Receive Date: 20131212
  Receipt Date: 20131212
  Transmission Date: 20140711
  Serious: Yes (Other)
  Sender: FDA-Public Use
  Company Number: US-INCYTE CORPORATION-2013IN001525

PATIENT
  Age: 72 Year
  Sex: Male
  Weight: 71.66 kg

DRUGS (14)
  1. JAKAFI [Suspect]
     Indication: MYELOFIBROSIS
     Dosage: 10 MG, BID
     Route: 048
     Dates: start: 20130517, end: 20130807
  2. EXJADE [Concomitant]
  3. JANUVIA [Concomitant]
  4. FOLIC ACID [Concomitant]
  5. METOPROLOL [Concomitant]
  6. LEVOTHYROXINE [Concomitant]
  7. ARANESP [Concomitant]
  8. NOVOLOG [Concomitant]
  9. LEVEMIR [Concomitant]
  10. FENOFIBRATE [Concomitant]
  11. CALCIUM [Concomitant]
  12. MAGNESIUM [Concomitant]
  13. MULTIVITAMIN [Concomitant]
  14. TYLENOL [Concomitant]

REACTIONS (2)
  - Anaemia [Unknown]
  - Thrombocytopenia [Unknown]
